FAERS Safety Report 10167901 (Version 1)
Quarter: 2014Q2

REPORT INFORMATION
  Report Type: Spontaneous
  Country: US (occurrence: US)
  Receive Date: 20140512
  Receipt Date: 20140512
  Transmission Date: 20141212
  Serious: No
  Sender: FDA-Public Use
  Company Number: US-009507513-2012SP023992

PATIENT
  Age: 19 Month
  Sex: Male
  Weight: 18.14 kg

DRUGS (2)
  1. CLARITIN ORAL SOLUTION [Suspect]
     Indication: PRODUCT USED FOR UNKNOWN INDICATION
     Dosage: 2.5 MG, QD
     Route: 048
     Dates: start: 20120424
  2. CLARITIN ORAL SOLUTION [Suspect]
     Indication: MEDICAL OBSERVATION
     Dosage: UNK UNK, ONCE
     Route: 048
     Dates: start: 20120424

REACTIONS (3)
  - Drug administered to patient of inappropriate age [Recovering/Resolving]
  - Overdose [Recovering/Resolving]
  - Off label use [Recovering/Resolving]
